FAERS Safety Report 25858071 (Version 1)
Quarter: 2025Q3

REPORT INFORMATION
  Report Type: Spontaneous
  Country: US (occurrence: US)
  Receive Date: 20250929
  Receipt Date: 20250929
  Transmission Date: 20251021
  Serious: Yes (Hospitalization, Other)
  Sender: COOPERSURGICAL
  Company Number: US-COOPERSURGICAL, INC.-2025CPS006862

PATIENT
  Age: 33 Year
  Sex: Female
  Weight: 86.168 kg

DRUGS (1)
  1. PARAGARD T 380A [Suspect]
     Active Substance: COPPER
     Indication: Contraception
     Route: 015
     Dates: start: 20080401

REACTIONS (25)
  - Abortion spontaneous [Recovered/Resolved]
  - Postpartum haemorrhage [Recovered/Resolved]
  - Premature separation of placenta [Not Recovered/Not Resolved]
  - Caesarean section [Recovered/Resolved]
  - Device breakage [Not Recovered/Not Resolved]
  - Foreign body in reproductive tract [Not Recovered/Not Resolved]
  - Complication of device removal [Not Recovered/Not Resolved]
  - Embedded device [Not Recovered/Not Resolved]
  - Dizziness [Recovered/Resolved]
  - Back pain [Unknown]
  - Dysuria [Recovered/Resolved]
  - Urinary incontinence [Recovered/Resolved]
  - Vulvovaginal pain [Unknown]
  - Post-traumatic stress disorder [Unknown]
  - Anxiety [Unknown]
  - Depression [Unknown]
  - Urinary retention [Unknown]
  - Pelvic pain [Unknown]
  - Pain [Not Recovered/Not Resolved]
  - Vaginal infection [Recovered/Resolved]
  - Abdominal pain lower [Recovered/Resolved]
  - Menstruation irregular [Recovered/Resolved]
  - Amenorrhoea [Recovered/Resolved]
  - Device dislocation [Recovered/Resolved]
  - Device expulsion [Recovered/Resolved]

NARRATIVE: CASE EVENT DATE: 20110125
